FAERS Safety Report 8282960-4 (Version None)
Quarter: 2012Q2

REPORT INFORMATION
  Report Type: 
  Country: None (occurrence: None)
  Receive Date: 20120413
  Receipt Date: 20120404
  Transmission Date: 20120825
  Serious: Yes (Disabling, Other)
  Sender: FDA-Public Use
  Company Number: BR-ASTRAZENECA-2012SE22661

PATIENT
  Age: 72 Year
  Sex: Male

DRUGS (2)
  1. BRILINTA [Suspect]
     Indication: CEREBROVASCULAR ACCIDENT
     Route: 048
  2. SYMBICORT [Suspect]
     Indication: CEREBROVASCULAR ACCIDENT
     Dosage: UNKNOWN DOSE
     Route: 055
     Dates: start: 20050101, end: 20120101

REACTIONS (3)
  - OFF LABEL USE [None]
  - DRUG INEFFECTIVE FOR UNAPPROVED INDICATION [None]
  - CEREBROVASCULAR ACCIDENT [None]
